FAERS Safety Report 9202137 (Version 1)
Quarter: 2013Q1

REPORT INFORMATION
  Report Type: Spontaneous
  Country: US (occurrence: None)
  Receive Date: 20130326
  Receipt Date: 20130326
  Transmission Date: 20140127
  Serious: Yes (Hospitalization, Other)
  Sender: FDA-Public Use
  Company Number: AUR-APL-2013-02380

PATIENT
  Age: 72 Year
  Sex: Female
  Weight: 74.83 kg

DRUGS (13)
  1. VENLAFAXINE [Suspect]
     Indication: DEPRESSION
     Dates: start: 2013
  2. EFFEXOR XR (VENLAFAXINE HYDROCHLORIDE) (75 MILLIGRAM, CAPSULE) (VENLAFAXINE HYDROCHLORIDE) [Suspect]
     Indication: DEPRESSION
     Dosage: (75 MG,3 IN 1 D)
     Route: 048
  3. BUPROPION (BUPROPION) [Concomitant]
  4. LISINOPRIL (LISINOPRIL) [Concomitant]
  5. LEVOTHYROXINE (LEVOTHYROXINE) [Concomitant]
  6. OMEPRAZOLE (OMEPRAZOLE) [Concomitant]
  7. VITAMIN D (ERGOCALCIFEROL) [Concomitant]
  8. CALCIUM W/VITAMIN D (LEKOVIT CA) [Concomitant]
  9. CHONDROITIN/GLUCOSAMINE/METHYLSULFONYLMETHANE (GLUCOSAMINE AND CHONDROITIN W/MSM) [Concomitant]
  10. FISH OIL (FISH OIL) [Concomitant]
  11. DOCUSATE SODIUM (DOCUSATE SODIUM) [Concomitant]
  12. MACROGOL (MACROGOL) [Concomitant]
  13. AVASTIN (SIMVASTATIN) [Concomitant]

REACTIONS (19)
  - Arthralgia [None]
  - Fall [None]
  - Scoliosis [None]
  - Nerve compression [None]
  - Joint swelling [None]
  - Joint warmth [None]
  - Erythema [None]
  - Back pain [None]
  - Chondropathy [None]
  - Inappropriate schedule of drug administration [None]
  - Drug withdrawal syndrome [None]
  - Nightmare [None]
  - Screaming [None]
  - Drug ineffective [None]
  - Product substitution issue [None]
  - Tremor [None]
  - Insomnia [None]
  - Nervousness [None]
  - Impaired work ability [None]
